FAERS Safety Report 13707076 (Version 3)
Quarter: 2017Q3

REPORT INFORMATION
  Report Type: Spontaneous
  Country: US (occurrence: US)
  Receive Date: 20170630
  Receipt Date: 20170905
  Transmission Date: 20171127
  Serious: No
  Sender: FDA-Public Use
  Company Number: US-GLAXOSMITHKLINE-US2017100504

PATIENT
  Age: 71 Year
  Sex: Female

DRUGS (2)
  1. FLOVENT DISKUS [Suspect]
     Active Substance: FLUTICASONE PROPIONATE
     Dosage: 2 PUFF(S), UNK
  2. FLOVENT DISKUS [Suspect]
     Active Substance: FLUTICASONE PROPIONATE
     Indication: ASTHMA
     Dosage: 2 PUFF(S), BID
     Route: 048
     Dates: start: 20170628

REACTIONS (6)
  - Product cleaning inadequate [Unknown]
  - Wheezing [Recovering/Resolving]
  - Product quality issue [Unknown]
  - Wrong technique in product usage process [Recovered/Resolved]
  - Device damage [Unknown]
  - Intentional underdose [Unknown]

NARRATIVE: CASE EVENT DATE: 20170628
